FAERS Safety Report 5259500-7 (Version None)
Quarter: 2007Q1

REPORT INFORMATION
  Report Type: 
  Country: None (occurrence: None)
  Receive Date: 20070306
  Receipt Date: 20070220
  Transmission Date: 20070707
  Serious: Yes (Death)
  Sender: FDA-Public Use
  Company Number: 2007AL000733

PATIENT
  Age: 52 Year
  Sex: Female

DRUGS (5)
  1. MIRTAZAPINE [Suspect]
     Dosage: PO
     Route: 048
  2. ZIPRASIDONE HCL [Concomitant]
  3. LEVOTHYROXINE SODIUM [Concomitant]
  4. LORAZEPAM [Concomitant]
  5. DESIPRAMINE HCL [Concomitant]

REACTIONS (7)
  - CALCINOSIS [None]
  - COMPLETED SUICIDE [None]
  - DRUG TOXICITY [None]
  - OVERDOSE [None]
  - PULMONARY CONGESTION [None]
  - PULMONARY OEDEMA [None]
  - THYROID NEOPLASM [None]
